FAERS Safety Report 10420578 (Version 1)
Quarter: 2014Q2

REPORT INFORMATION
  Report Type: Spontaneous
  Country: US (occurrence: None)
  Receive Date: 20140627
  Receipt Date: 20140627
  Transmission Date: 20141212
  Serious: Yes (Other)
  Sender: FDA-Public Use
  Company Number: US-JNJFOC20130405934

PATIENT
  Sex: 0

DRUGS (2)
  1. EVICEL [Suspect]
     Indication: FACE LIFT
     Route: 061
     Dates: start: 20130320, end: 20130320
  2. OTHER THERAPEUTIC PRODUCTS (ALL OTHER THERAPEUTIC PRODUCTS) UNSPECIFIED [Concomitant]

REACTIONS (2)
  - Haematoma [None]
  - Off label use [None]
